FAERS Safety Report 6031472-7 (Version None)
Quarter: 2009Q1

REPORT INFORMATION
  Report Type: 
  Country: None (occurrence: None)
  Receive Date: 20090108
  Receipt Date: 20081215
  Transmission Date: 20090719
  Serious: Yes (Other)
  Sender: FDA-Public Use
  Company Number: US-PFIZER INC-2008153130

PATIENT
  Sex: Female
  Weight: 58.967 kg

DRUGS (6)
  1. NEURONTIN [Suspect]
     Indication: CONVULSION
     Dates: start: 20050101, end: 20081101
  2. NEURONTIN [Suspect]
     Indication: COMPLEX REGIONAL PAIN SYNDROME
  3. GABAPENTIN [Suspect]
     Dosage: UNK
     Dates: start: 20081101
  4. SINGULAIR [Concomitant]
     Dosage: 10 MG, 1X/DAY
  5. NORETHISTERONE [Concomitant]
     Dosage: UNK
  6. IBUPROFEN [Concomitant]
     Indication: MIGRAINE
     Dosage: UNK

REACTIONS (3)
  - CONVULSION [None]
  - DRUG LEVEL CHANGED [None]
  - MIGRAINE [None]
